FAERS Safety Report 8400925-6 (Version None)
Quarter: 2012Q2

REPORT INFORMATION
  Report Type: 
  Country: None (occurrence: None)
  Receive Date: 20120601
  Receipt Date: 20120518
  Transmission Date: 20120825
  Serious: Yes (Other)
  Sender: FDA-Public Use
  Company Number: BR-AMGEN-BRASP2012032292

PATIENT
  Age: 55 Year
  Sex: Female
  Weight: 60 kg

DRUGS (2)
  1. ENBREL [Suspect]
     Dosage: 50 MG, WEEKLY
     Route: 058
     Dates: start: 20111101
  2. ENBREL [Suspect]
     Indication: RHEUMATOID ARTHRITIS
     Dosage: UNK
     Dates: start: 20091101, end: 20111101

REACTIONS (5)
  - C-REACTIVE PROTEIN [None]
  - LARYNGEAL OEDEMA [None]
  - RED BLOOD CELL SEDIMENTATION RATE ABNORMAL [None]
  - APPLICATION SITE PAIN [None]
  - INJECTION SITE PAIN [None]
